FAERS Safety Report 6721767-3 (Version None)
Quarter: 2010Q2

REPORT INFORMATION
  Report Type: 
  Country: None (occurrence: None)
  Receive Date: 20100503
  Receipt Date: 20090512
  Transmission Date: 20101027
  Serious: Yes (Other)
  Sender: FDA-Public Use
  Company Number: E-09-135

PATIENT
  Age: 69 Year
  Sex: Male

DRUGS (6)
  1. PHENTERMINE [Suspect]
     Indication: WEIGHT DECREASED
     Dosage: 37.5 MG ONE PO QD
     Route: 048
     Dates: start: 20090312
  2. METFORMIN HYDROCHLORIDE [Concomitant]
  3. AMLODIPINE [Concomitant]
  4. WARFARIN SODIUM [Concomitant]
  5. RAMIPRIL [Concomitant]
  6. SIMVASTATIN [Concomitant]

REACTIONS (1)
  - CHEST PAIN [None]
